FAERS Safety Report 8309213-X (Version None)
Quarter: 2012Q2

REPORT INFORMATION
  Report Type: 
  Country: None (occurrence: None)
  Receive Date: 20120424
  Receipt Date: 20120410
  Transmission Date: 20120825
  Serious: Yes (Other)
  Sender: FDA-Public Use
  Company Number: CHPA2012US009134

PATIENT
  Age: 69 Year
  Sex: Female

DRUGS (3)
  1. ALENDRONATE SODIUM [Concomitant]
     Indication: OSTEOGENESIS IMPERFECTA
  2. EXCEDRIN (MIGRAINE) [Suspect]
     Indication: NEURALGIA
     Dosage: 1 DF, PRN
     Route: 048
  3. GABAPENTIN [Concomitant]
     Indication: NEURALGIA

REACTIONS (4)
  - OFF LABEL USE [None]
  - UNDERDOSE [None]
  - DIZZINESS [None]
  - CARDIAC DISORDER [None]
